FAERS Safety Report 6901125-9 (Version None)
Quarter: 2010Q3

REPORT INFORMATION
  Report Type: 
  Country: None (occurrence: None)
  Receive Date: 20100708
  Receipt Date: 20090805
  Transmission Date: 20110219
  Serious: Yes (Other)
  Sender: FDA-Public Use
  Company Number: 2009251462

PATIENT
  Sex: Female
  Weight: 65.8 kg

DRUGS (2)
  1. CHANTIX [Suspect]
     Indication: SMOKING CESSATION THERAPY
     Dosage: 1 MG, 2X/DAY, ORAL ; 1 MG, 1X/DAY, ORAL
     Route: 048
     Dates: end: 20090601
  2. CHANTIX [Suspect]
     Indication: SMOKING CESSATION THERAPY
     Dosage: 1 MG, 2X/DAY, ORAL ; 1 MG, 1X/DAY, ORAL
     Route: 048
     Dates: start: 20080101

REACTIONS (8)
  - ANXIETY [None]
  - DEPRESSION [None]
  - HEADACHE [None]
  - MOOD SWINGS [None]
  - NIGHTMARE [None]
  - PALPITATIONS [None]
  - SUICIDAL IDEATION [None]
  - SUICIDE ATTEMPT [None]
